FAERS Safety Report 5928927-X (Version None)
Quarter: 2008Q3

REPORT INFORMATION
  Report Type: 
  Country: None (occurrence: None)
  Receive Date: 20080924
  Receipt Date: 20080319
  Transmission Date: 20090109
  Serious: Yes (Other)
  Sender: FDA-Public Use
  Company Number: PHEH2007US14974

PATIENT
  Age: 86 Year
  Sex: Female

DRUGS (9)
  1. LOPRESSOR [Suspect]
     Indication: CHEST PAIN
     Dosage: 50 MG, BID
     Dates: start: 20070701
  2. PROCARDIA [Suspect]
     Indication: HYPERTENSION
     Dosage: BID : QD
     Dates: start: 20070701, end: 20070901
  3. PROCARDIA [Suspect]
     Indication: HYPERTENSION
     Dosage: BID : QD
     Dates: start: 20071112
  4. ZESTRIL [Suspect]
     Indication: HYPERTENSION
     Dosage: QD
     Dates: start: 20070701
  5. ARAVA [Suspect]
     Indication: ARTHRITIS
     Dates: start: 20070901, end: 20071112
  6. FLEXERIL [Concomitant]
  7. SLO-MAG (MAGNESIUM CHLORIDE ANHYDROUS) [Concomitant]
  8. ASCORBIC ACID [Concomitant]
  9. VITAMIN E [Concomitant]

REACTIONS (1)
  - BLOOD PRESSURE INCREASED [None]
